FAERS Safety Report 18411463 (Version 2)
Quarter: 2020Q4

REPORT INFORMATION
  Report Type: Report from Study
  Country: MX (occurrence: MX)
  Receive Date: 20201021
  Receipt Date: 20201102
  Transmission Date: 20210114
  Serious: Yes (Hospitalization, Other)
  Sender: FDA-Public Use
  Company Number: NVSC2020MX280122

PATIENT
  Age: 44 Year
  Sex: Male
  Weight: 83 kg

DRUGS (7)
  1. ENTRESTO [Suspect]
     Active Substance: SACUBITRIL\VALSARTAN
     Indication: CARDIAC FAILURE
     Dosage: 50 MG, QD
     Route: 048
     Dates: start: 20180620, end: 2019
  2. ATORVASTATIN [Suspect]
     Active Substance: ATORVASTATIN
     Indication: CARDIAC DISORDER
     Dosage: 40 MG, QD
     Route: 048
     Dates: start: 20201013
  3. ENTRESTO [Suspect]
     Active Substance: SACUBITRIL\VALSARTAN
     Dosage: 50 MG, QD
     Route: 048
     Dates: start: 20201013
  4. ASPIRINE PROTECT [Concomitant]
     Active Substance: ASPIRIN
     Indication: THROMBOSIS
     Dosage: 100 MG, QD
     Route: 048
     Dates: start: 20201013
  5. ENTRESTO [Suspect]
     Active Substance: SACUBITRIL\VALSARTAN
     Indication: AORTIC STENOSIS
     Dosage: 0.5 DF, Q12H
     Route: 065
     Dates: start: 2019
  6. ENTRESTO [Suspect]
     Active Substance: SACUBITRIL\VALSARTAN
     Dosage: 50 MG, BID (1/2 IN THE MORNING, 1/2 IN THE NIGHT)
     Route: 048
     Dates: end: 20201012
  7. SIG [Concomitant]
     Indication: BLOOD PRESSURE ABNORMAL
     Dosage: 5 MG (1), Q12H
     Route: 048
     Dates: start: 20201013

REACTIONS (6)
  - Pneumonia [Recovering/Resolving]
  - Product prescribing error [Unknown]
  - Weight decreased [Unknown]
  - Cough [Unknown]
  - Wrong technique in product usage process [Unknown]
  - Complication associated with device [Recovered/Resolved]

NARRATIVE: CASE EVENT DATE: 20201011
